FAERS Safety Report 9918730 (Version 1)
Quarter: 2014Q1

REPORT INFORMATION
  Report Type: Report from Study
  Country: US (occurrence: US)
  Receive Date: 20140224
  Receipt Date: 20140224
  Transmission Date: 20141002
  Serious: Yes (Hospitalization, Other)
  Sender: FDA-Public Use
  Company Number: US-ROCHE-1333058

PATIENT
  Age: 63 Year
  Sex: Male

DRUGS (4)
  1. LUCENTIS [Suspect]
     Indication: DIABETIC RETINAL OEDEMA
     Dosage: DOSING FOR OD
     Route: 050
  2. LUCENTIS [Suspect]
     Dosage: DOSING FOR OS
     Route: 050
  3. AVASTIN [Suspect]
     Indication: PRODUCT USED FOR UNKNOWN INDICATION
     Route: 065
  4. RESTASIS [Concomitant]
     Route: 065

REACTIONS (12)
  - Hemiparesis [Unknown]
  - Cerebrovascular accident [Unknown]
  - Cystoid macular oedema [Unknown]
  - Blood glucose increased [Unknown]
  - Diabetic retinopathy [Unknown]
  - Pain [Unknown]
  - Stress [Unknown]
  - Cataract [Unknown]
  - Vitreous detachment [Unknown]
  - Vitreous floaters [Unknown]
  - Keratopathy [Unknown]
  - Toxicity to various agents [Unknown]
